FAERS Safety Report 8589627-3 (Version None)
Quarter: 2012Q3

REPORT INFORMATION
  Report Type: 
  Country: None (occurrence: None)
  Receive Date: 20120813
  Receipt Date: 20120802
  Transmission Date: 20120928
  Serious: Yes (Hospitalization)
  Sender: FDA-Public Use
  Company Number: CN-ASTRAZENECA-2012SE55638

PATIENT
  Sex: Female
  Weight: 67 kg

DRUGS (2)
  1. FELODIPINE [Suspect]
     Indication: HYPERTENSION
     Route: 048
     Dates: start: 20090315, end: 20100405
  2. ASPIRIN [Concomitant]
     Indication: HYPERTENSION
     Route: 048
     Dates: start: 20090315, end: 20100405

REACTIONS (5)
  - ASTHMA [None]
  - OEDEMA PERIPHERAL [None]
  - HYPERTENSION [None]
  - FACE OEDEMA [None]
  - DRUG INEFFECTIVE [None]
